FAERS Safety Report 7525862-0 (Version None)
Quarter: 2011Q2

REPORT INFORMATION
  Report Type: 
  Country: None (occurrence: None)
  Receive Date: 20110606
  Receipt Date: 20110526
  Transmission Date: 20111010
  Serious: Yes (Other)
  Sender: FDA-Public Use
  Company Number: A0929318A

PATIENT
  Sex: Female

DRUGS (2)
  1. IMITREX [Suspect]
     Indication: MIGRAINE
     Dosage: .5TAB UNKNOWN
     Route: 048
  2. OMEPRAZOLE [Concomitant]

REACTIONS (3)
  - GASTRIC ULCER [None]
  - NAUSEA [None]
  - DRUG ADMINISTRATION ERROR [None]
